FAERS Safety Report 4423430-0 (Version None)
Quarter: 2004Q3

REPORT INFORMATION
  Report Type: 
  Country: None (occurrence: None)
  Receive Date: 20040806
  Receipt Date: 20040726
  Transmission Date: 20050211
  Serious: Yes (Other)
  Sender: FDA-Public Use
  Company Number: 2004225675GB

PATIENT
  Sex: Male

DRUGS (8)
  1. IDARUBICIN HCL [Suspect]
     Indication: ACUTE MYELOID LEUKAEMIA
     Dosage: 18 MG, QD X 3 DAYS, CYCLE 2, IV
     Route: 042
  2. CYTARABINE INJECTABLE SOLUTION (CYTARABNIE) SOLUTION, STERILE [Suspect]
     Indication: ACUTE MYELOID LEUKAEMIA
     Dosage: 180 MG, BID FOR 6 DAYS, CYCLE 2 , IV
     Route: 042
  3. PHENYTOIN [Concomitant]
  4. PHENOBARBITONE [Concomitant]
  5. ACYCLOVIR [Concomitant]
  6. FLUCONAZOLE [Concomitant]
  7. LANSOPRAZOLE [Concomitant]
  8. LAXATIVES [Concomitant]

REACTIONS (1)
  - NEUROPATHY PERIPHERAL [None]
